FAERS Safety Report 10865782 (Version 1)
Quarter: 2015Q1

REPORT INFORMATION
  Report Type: Report from Study
  Country: US (occurrence: US)
  Receive Date: 20150224
  Receipt Date: 20150224
  Transmission Date: 20150721
  Serious: No
  Sender: FDA-Public Use
  Company Number: US-MYLANLABS-2014S1017023

PATIENT
  Sex: Female
  Weight: 121.1 kg

DRUGS (4)
  1. AMNESTEEM [Suspect]
     Active Substance: ISOTRETINOIN
     Indication: OFF LABEL USE
  2. AMNESTEEM [Suspect]
     Active Substance: ISOTRETINOIN
     Indication: HIDRADENITIS
  3. AMNESTEEM [Suspect]
     Active Substance: ISOTRETINOIN
     Dosage: 40 MG, QD
     Dates: start: 20140411, end: 20140710
  4. SEPTRA DS [Concomitant]
     Active Substance: SULFAMETHOXAZOLE\TRIMETHOPRIM
     Dosage: 1 DF, BID
     Route: 048

REACTIONS (2)
  - Arthritis [Recovered/Resolved]
  - Arthralgia [Not Recovered/Not Resolved]
